FAERS Safety Report 9629365 (Version 1)
Quarter: 2013Q4

REPORT INFORMATION
  Report Type: Spontaneous
  Country: US (occurrence: US)
  Receive Date: 20131017
  Receipt Date: 20131017
  Transmission Date: 20140711
  Serious: No
  Sender: FDA-Public Use
  Company Number: US-ASTRAZENECA-2013SE58981

PATIENT
  Age: 71 Year
  Sex: Female
  Weight: 60.3 kg

DRUGS (3)
  1. CRESTOR [Suspect]
     Indication: BLOOD CHOLESTEROL INCREASED
     Route: 048
     Dates: start: 2013
  2. ATENOLOL [Suspect]
     Indication: HEART RATE IRREGULAR
     Dosage: GENERIC
     Route: 048
     Dates: start: 1997
  3. MULTIPLE VITAMINS [Concomitant]

REACTIONS (7)
  - Body height decreased [Not Recovered/Not Resolved]
  - Muscle spasms [Not Recovered/Not Resolved]
  - Muscle spasms [Not Recovered/Not Resolved]
  - Pain in extremity [Recovered/Resolved]
  - Insomnia [Recovered/Resolved]
  - Drug dose omission [Recovered/Resolved]
  - Off label use [Unknown]
